FAERS Safety Report 18575958 (Version 2)
Quarter: 2021Q1

REPORT INFORMATION
  Report Type: Spontaneous
  Country: US (occurrence: US)
  Receive Date: 20201203
  Receipt Date: 20210111
  Transmission Date: 20210419
  Serious: Yes (Death, Other)
  Sender: FDA-Public Use
  Company Number: US-AMGEN-USASP2020192541

PATIENT
  Age: 47 Year
  Sex: Female

DRUGS (3)
  1. POTASSIUM PHOSPHATE MONOBASIC;SODIUM PHOSPHATE [Concomitant]
     Dosage: 250?45?298 MG, TID
  2. XGEVA [Suspect]
     Active Substance: DENOSUMAB
     Indication: METASTASES TO BONE
     Dosage: 120 MILLIGRAM, QMO
     Route: 065
  3. POTASSIUM PHOSPHATE MONOBASIC;SODIUM PHOSPHATE [Concomitant]
     Dosage: 250?45?298 MG, QID

REACTIONS (6)
  - Osteomalacia [Unknown]
  - Blood alkaline phosphatase increased [Unknown]
  - Disease progression [Fatal]
  - Hypocalcaemia [Unknown]
  - Hyperparathyroidism secondary [Unknown]
  - Hypophosphataemia [Unknown]
